FAERS Safety Report 6111682-0 (Version None)
Quarter: 2009Q1

REPORT INFORMATION
  Report Type: 
  Country: None (occurrence: None)
  Receive Date: 20090309
  Receipt Date: 20090305
  Transmission Date: 20090719
  Serious: Yes (Death)
  Sender: FDA-Public Use
  Company Number: GB-EBEWE-0285CISFLUORO09

PATIENT
  Age: 43 Year
  Sex: Male
  Weight: 84 kg

DRUGS (3)
  1. FLUOROURACIL INJ [Suspect]
     Indication: OESOPHAGEAL SQUAMOUS CELL CARCINOMA METASTATIC
     Dosage: 9300 MG, IV
     Route: 042
     Dates: start: 20081104, end: 20081106
  2. CISPLATIN [Suspect]
     Indication: OESOPHAGEAL SQUAMOUS CELL CARCINOMA METASTATIC
     Dosage: 186 MG, SINGLE, IV
     Route: 042
     Dates: start: 20081104, end: 20081106
  3. NEXIUM [Concomitant]

REACTIONS (3)
  - CIRCULATORY COLLAPSE [None]
  - PULMONARY EMBOLISM [None]
  - RESPIRATORY FAILURE [None]
